FAERS Safety Report 26142912 (Version 1)
Quarter: 2025Q4

REPORT INFORMATION
  Report Type: Spontaneous
  Country: US (occurrence: US)
  Receive Date: 20251211
  Receipt Date: 20251211
  Transmission Date: 20260119
  Serious: Yes (Other)
  Sender: DR REDDYS
  Company Number: None

PATIENT
  Age: 54 Year
  Sex: Male

DRUGS (4)
  1. DOXORUBICIN [Suspect]
     Active Substance: DOXORUBICIN
     Indication: Follicular thyroid cancer
     Dosage: DOXORUBICIN AND MITOMYCIN C WERE ADMINISTERED IN AN EMULSION WITH ENDOTHELIALIZED OIL AND EMBOZENE M
  2. DOXORUBICIN [Suspect]
     Active Substance: DOXORUBICIN
     Indication: Metastases to bone
  3. MITOMYCIN C [Suspect]
     Active Substance: MITOMYCIN
     Indication: Follicular thyroid cancer
     Dosage: DOXORUBICIN AND MITOMYCIN C WERE ADMINISTERED IN AN EMULSION WITH ENDOTHELIALIZED OIL AND EMBOZENE M
  4. MITOMYCIN C [Suspect]
     Active Substance: MITOMYCIN
     Indication: Metastases to bone

REACTIONS (1)
  - Myelitis transverse [Recovering/Resolving]
